FAERS Safety Report 17401676 (Version 1)
Quarter: 2020Q1

REPORT INFORMATION
  Report Type: Spontaneous
  Country: US (occurrence: US)
  Receive Date: 20200211
  Receipt Date: 20200211
  Transmission Date: 20200409
  Serious: No
  Sender: FDA-Public Use
  Company Number: US-ALLERGAN-1932334US

PATIENT
  Age: 73 Year
  Sex: Male

DRUGS (5)
  1. UNSPECIFIED BLOOD THINNER MEDICATION [Concomitant]
     Indication: BLOOD DISORDER
  2. FLUOROMETHOLONE, 0.1% [Suspect]
     Active Substance: FLUOROMETHOLONE
     Dosage: UNK
  3. LIPITOR [Concomitant]
     Active Substance: ATORVASTATIN CALCIUM
  4. TRILEPTAL [Concomitant]
     Active Substance: OXCARBAZEPINE
     Indication: SEIZURE
  5. FLUOROMETHOLONE, 0.1% [Suspect]
     Active Substance: FLUOROMETHOLONE
     Indication: ACCIDENTAL EXPOSURE TO PRODUCT
     Dosage: UNK

REACTIONS (2)
  - Accidental exposure to product [Unknown]
  - Product packaging issue [Unknown]
